FAERS Safety Report 24067839 (Version 1)
Quarter: 2024Q3

REPORT INFORMATION
  Report Type: Spontaneous
  Country: US (occurrence: US)
  Receive Date: 20240710
  Receipt Date: 20240710
  Transmission Date: 20241017
  Serious: Yes (Other)
  Sender: AUROBINDO
  Company Number: US-AUROBINDO-AUR-APL-2024-031166

PATIENT
  Sex: Female
  Weight: 118.8 kg

DRUGS (1)
  1. SPIRONOLACTONE [Suspect]
     Active Substance: SPIRONOLACTONE
     Indication: Product used for unknown indication
     Dosage: UNK
     Route: 065

REACTIONS (17)
  - Impaired gastric emptying [Unknown]
  - Amenorrhoea [Unknown]
  - Urticaria [Unknown]
  - Confusional state [Unknown]
  - Dyspepsia [Unknown]
  - Vision blurred [Unknown]
  - Dyskinesia [Unknown]
  - Asthenia [Unknown]
  - Constipation [Unknown]
  - Muscle spasms [Unknown]
  - Memory impairment [Unknown]
  - Rash [Unknown]
  - Alopecia [Unknown]
  - Paraesthesia [Unknown]
  - Pollakiuria [Unknown]
  - Fatigue [Unknown]
  - Pain [Unknown]
